FAERS Safety Report 4809032-2 (Version None)
Quarter: 2005Q4

REPORT INFORMATION
  Report Type: 
  Country: None (occurrence: None)
  Receive Date: 20051021
  Receipt Date: 20051012
  Transmission Date: 20060501
  Serious: Yes (Hospitalization)
  Sender: FDA-Public Use
  Company Number: 163-20785-05090105

PATIENT
  Age: 83 Year
  Sex: Female

DRUGS (17)
  1. THALOMID [Suspect]
     Indication: MULTIPLE MYELOMA
     Dosage: SEE IMAGE
     Route: 048
     Dates: start: 20050720, end: 20050901
  2. THALOMID [Suspect]
     Indication: MULTIPLE MYELOMA
     Dosage: SEE IMAGE
     Route: 048
     Dates: start: 20050901
  3. LESCOL [Concomitant]
  4. LASIX [Concomitant]
  5. ZOLOFT [Concomitant]
  6. ASPIRIN [Concomitant]
  7. COLACE (DOCUSATE SODIUM) [Concomitant]
  8. RISPERDAL [Concomitant]
  9. PILOCARPINE (PILOCARPINE) [Concomitant]
  10. ALPHAGAN [Concomitant]
  11. COSOPT (COSOPT) [Concomitant]
  12. SINEMET [Concomitant]
  13. COUMADIN [Concomitant]
  14. MACRODANTIN [Concomitant]
  15. XANAX [Concomitant]
  16. VICODIN [Concomitant]
  17. COREG [Concomitant]

REACTIONS (3)
  - CARDIAC FAILURE CONGESTIVE [None]
  - CHRONIC OBSTRUCTIVE PULMONARY DISEASE [None]
  - DEEP VEIN THROMBOSIS [None]
